FAERS Safety Report 6524258-8 (Version None)
Quarter: 2009Q4

REPORT INFORMATION
  Report Type: 
  Country: None (occurrence: None)
  Receive Date: 20091230
  Receipt Date: 20091230
  Transmission Date: 20100525
  Serious: Yes (Hospitalization)
  Sender: FDA-Public Use
  Company Number: None

PATIENT
  Sex: Female
  Weight: 105.6881 kg

DRUGS (3)
  1. BYETTA [Suspect]
     Indication: DIABETES MELLITUS
     Dosage: 10MCG BID SQ
     Route: 058
  2. LOVASTATIN [Suspect]
     Indication: HYPERLIPIDAEMIA
     Dosage: 20MG DAILY PO
     Route: 048
  3. TRAMADOL HCL [Suspect]

REACTIONS (5)
  - H1N1 INFLUENZA [None]
  - HEPATIC STEATOSIS [None]
  - PHARYNGITIS [None]
  - SERUM FERRITIN INCREASED [None]
  - VIRAL INFECTION [None]
